FAERS Safety Report 9323269 (Version 1)
Quarter: 2013Q2

REPORT INFORMATION
  Report Type: Spontaneous
  Country: US (occurrence: US)
  Receive Date: 20130603
  Receipt Date: 20130603
  Transmission Date: 20140414
  Serious: No
  Sender: FDA-Public Use
  Company Number: US-009507513-1305USA014059

PATIENT
  Age: 58 Year
  Sex: Male

DRUGS (1)
  1. COSOPT [Suspect]
     Indication: GLAUCOMA
     Dosage: 2 ONE DROP IN EACH EYE TWICE A DAY, MORNING AND EVENING
     Route: 047

REACTIONS (4)
  - Eye irritation [Recovering/Resolving]
  - Eye pain [Recovering/Resolving]
  - Eye irritation [Recovering/Resolving]
  - Blepharitis [Recovering/Resolving]
